FAERS Safety Report 7553711-3 (Version None)
Quarter: 2011Q2

REPORT INFORMATION
  Report Type: 
  Country: None (occurrence: None)
  Receive Date: 20110609
  Receipt Date: 20110527
  Transmission Date: 20111010
  Serious: Yes (Other)
  Sender: FDA-Public Use
  Company Number: 1000021442

PATIENT
  Age: 74 Year
  Sex: Male

DRUGS (3)
  1. TESTOSTERONE [Concomitant]
  2. OROXINE (LEVOTHYROXINE SODIUM) [Concomitant]
  3. CITALOPRAM HYDROBROMIDE [Suspect]

REACTIONS (2)
  - VISION BLURRED [None]
  - PRURITUS [None]
